FAERS Safety Report 7585669-5 (Version None)
Quarter: 2011Q2

REPORT INFORMATION
  Report Type: 
  Country: None (occurrence: None)
  Receive Date: 20110624
  Receipt Date: 20110614
  Transmission Date: 20111010
  Serious: Yes (Other)
  Sender: FDA-Public Use
  Company Number: JHP201100210

PATIENT
  Age: 34 Year
  Sex: Male

DRUGS (1)
  1. KETALAR [Suspect]
     Indication: DRUG ABUSE
     Dosage: 1 G, DAILY,
     Dates: start: 19980101

REACTIONS (11)
  - CYSTITIS [None]
  - FIBROSIS [None]
  - METAPLASIA [None]
  - BLADDER DYSFUNCTION [None]
  - URETERIC STENOSIS [None]
  - DRUG ABUSE [None]
  - HYDRONEPHROSIS [None]
  - URETERAL DISORDER [None]
  - RENAL FAILURE [None]
  - LIVER DISORDER [None]
  - ULCER [None]
